FAERS Safety Report 21371406 (Version 6)
Quarter: 2023Q2

REPORT INFORMATION
  Report Type: Spontaneous
  Country: US (occurrence: US)
  Receive Date: 20220923
  Receipt Date: 20230504
  Transmission Date: 20230721
  Serious: No
  Sender: FDA-Public Use
  Company Number: US-PFIZER INC-PV202200068508

PATIENT
  Age: 59 Year
  Sex: Male
  Weight: 83.9 kg

DRUGS (1)
  1. RUXIENCE [Suspect]
     Active Substance: RITUXIMAB-PVVR
     Dosage: 700 MG

REACTIONS (12)
  - Oxygen therapy [Unknown]
  - Illness [Recovering/Resolving]
  - Nausea [Unknown]
  - Memory impairment [Unknown]
  - Dysgraphia [Unknown]
  - Thinking abnormal [Unknown]
  - Weight increased [Unknown]
  - Weight decreased [Unknown]
  - Platelet count decreased [Unknown]
  - Abdominal pain [Unknown]
  - Fatigue [Not Recovered/Not Resolved]
  - COVID-19 [Recovering/Resolving]

NARRATIVE: CASE EVENT DATE: 20220901
